FAERS Safety Report 7319596-5 (Version None)
Quarter: 2011Q1

REPORT INFORMATION
  Report Type: 
  Country: None (occurrence: None)
  Receive Date: 20110228
  Receipt Date: 20100614
  Transmission Date: 20110831
  Serious: No
  Sender: FDA-Public Use
  Company Number: A0863331A

PATIENT
  Age: 53 Year
  Sex: Female

DRUGS (6)
  1. ALEVE [Concomitant]
  2. XANAX [Concomitant]
  3. LAMICTAL [Suspect]
     Indication: BIPOLAR DISORDER
     Dosage: 300MG PER DAY
     Route: 048
  4. SINUS MEDICATION [Concomitant]
  5. LEVOTHYROXINE SODIUM [Concomitant]
  6. WATER PILL [Concomitant]

REACTIONS (3)
  - HEADACHE [None]
  - PANIC ATTACK [None]
  - SINUS DISORDER [None]
